FAERS Safety Report 17699687 (Version 2)
Quarter: 2020Q2

REPORT INFORMATION
  Report Type: Spontaneous
  Country: US (occurrence: US)
  Receive Date: 20200423
  Receipt Date: 20200522
  Transmission Date: 20200714
  Serious: Yes (Other)
  Sender: FDA-Public Use
  Company Number: US-PFIZER INC-2020158657

PATIENT
  Age: 71 Year
  Sex: Female

DRUGS (1)
  1. XELJANZ [Suspect]
     Active Substance: TOFACITINIB CITRATE
     Indication: RHEUMATOID ARTHRITIS
     Dosage: 5 MG, 2X/DAY
     Route: 048
     Dates: start: 2013

REACTIONS (9)
  - Memory impairment [Unknown]
  - Product administration error [Unknown]
  - Depression [Unknown]
  - Maculopathy [Unknown]
  - Dysphonia [Unknown]
  - Back pain [Unknown]
  - Product dose omission [Unknown]
  - Drug ineffective [Unknown]
  - Gait disturbance [Unknown]
